FAERS Safety Report 10209290 (Version 1)
Quarter: 2014Q2

REPORT INFORMATION
  Report Type: Report from Study
  Country: BR (occurrence: BR)
  Receive Date: 20140530
  Receipt Date: 20140530
  Transmission Date: 20141212
  Serious: Yes (Other)
  Sender: FDA-Public Use
  Company Number: PHHY2014BR066684

PATIENT
  Sex: Female
  Weight: 53 kg

DRUGS (4)
  1. ACLASTA [Suspect]
     Indication: OSTEOPOROSIS
     Dosage: UNK UKN, ONCE PER YEAR
     Route: 042
     Dates: start: 2013
  2. URSACOL [Concomitant]
     Indication: BILIARY CIRRHOSIS PRIMARY
     Dosage: 2 DF,DAILY
     Dates: start: 2012
  3. ATENOLOL [Concomitant]
     Indication: MIGRAINE
     Dosage: 0.5 DF, DAILY
     Dates: start: 2013
  4. AMYTRIL [Concomitant]
     Indication: MIGRAINE
     Dosage: 1 DF, DAILY

REACTIONS (1)
  - Migraine [Not Recovered/Not Resolved]
